FAERS Safety Report 8553961-3 (Version None)
Quarter: 2012Q3

REPORT INFORMATION
  Report Type: 
  Country: None (occurrence: None)
  Receive Date: 20120731
  Receipt Date: 20120723
  Transmission Date: 20120928
  Serious: Yes (Other)
  Sender: FDA-Public Use
  Company Number: JP-009507513-1207JPN010206

PATIENT

DRUGS (17)
  1. ZOLINZA [Suspect]
     Indication: MYCOSIS FUNGOIDES
     Route: 048
     Dates: start: 20111101, end: 20111104
  2. DEXAMETHASONE SODIUM PHOSPHATE [Concomitant]
     Dosage: DAILY DOSAGE UNKNOWN
     Route: 065
     Dates: start: 20110830
  3. PARAPLATIN AQ [Concomitant]
     Indication: MYCOSIS FUNGOIDES
     Dosage: DAILY DOSAGE UNKNOWN
     Route: 041
     Dates: start: 20110913
  4. IFOSFAMIDE [Concomitant]
     Indication: MYCOSIS FUNGOIDES
     Dosage: DAILY DOSAGE UNKNOWN
     Route: 042
     Dates: start: 20110913
  5. LANSOPRAZOLE [Concomitant]
     Indication: PROPHYLAXIS
     Route: 048
  6. VFEND [Concomitant]
     Indication: PROPHYLAXIS
     Route: 048
     Dates: end: 20111106
  7. MIYA BM [Concomitant]
     Indication: PROPHYLAXIS
     Route: 048
  8. ITRACONAZOLE [Concomitant]
     Indication: PROPHYLAXIS
     Route: 048
     Dates: start: 20111107
  9. DEXAMETHASONE SODIUM PHOSPHATE [Concomitant]
     Indication: MYCOSIS FUNGOIDES
     Dosage: DAILY DOSAGE UNKNOWN
     Route: 065
     Dates: start: 20101101
  10. DEXAMETHASONE SODIUM PHOSPHATE [Concomitant]
     Dosage: DAILY DOSAGE UNKNOWN
     Route: 065
     Dates: start: 20110808
  11. DEXAMETHASONE SODIUM PHOSPHATE [Concomitant]
     Dosage: DAILY DOSAGE UNKNOWN
     Route: 065
     Dates: start: 20110913
  12. DAIPHEN [Concomitant]
     Indication: PROPHYLAXIS
     Route: 048
  13. IRINOTECAN HYDROCHLORIDE [Concomitant]
     Indication: MYCOSIS FUNGOIDES
     Dosage: DAILY DOSAGE UNKNOWN
     Route: 041
     Dates: start: 20110808
  14. ZOLINZA [Suspect]
     Route: 048
     Dates: start: 20111110, end: 20111116
  15. FILDESIN [Concomitant]
     Indication: MYCOSIS FUNGOIDES
     Dosage: DAILY DOSAGE UNKNOWN
     Route: 042
     Dates: start: 20101101
  16. DEXAMETHASONE SODIUM PHOSPHATE [Concomitant]
     Dosage: DAILY DOSAGE UNKNOWN
     Route: 065
     Dates: start: 20110913
  17. MAGMITT [Concomitant]
     Indication: PROPHYLAXIS
     Route: 048

REACTIONS (2)
  - BONE MARROW FAILURE [None]
  - NAUSEA [None]
